FAERS Safety Report 7237894-0 (Version None)
Quarter: 2011Q1

REPORT INFORMATION
  Report Type: 
  Country: None (occurrence: None)
  Receive Date: 20110121
  Receipt Date: 20110118
  Transmission Date: 20110831
  Serious: Yes (Other)
  Sender: FDA-Public Use
  Company Number: US-JNJCH-2011001675

PATIENT
  Sex: Female

DRUGS (1)
  1. LISTERINE ANTISEPTIC MOUTHWASH [Suspect]
     Indication: ACCIDENTAL EXPOSURE
     Dosage: TEXT:UNKNOWN
     Route: 061

REACTIONS (1)
  - CHEMICAL INJURY [None]
